FAERS Safety Report 9706031 (Version 1)
Quarter: 2013Q4

REPORT INFORMATION
  Report Type: Spontaneous
  Country: JP (occurrence: JP)
  Receive Date: 20131122
  Receipt Date: 20131122
  Transmission Date: 20140711
  Serious: Yes (Disabling)
  Sender: FDA-Public Use
  Company Number: JP-ALLERGAN-1318439US

PATIENT
  Age: 81 Year
  Sex: Female

DRUGS (7)
  1. GATIFLO [Suspect]
     Indication: KERATITIS
     Dosage: 1 GTT, TID - QID
     Route: 047
     Dates: start: 20131105, end: 20131105
  2. KARY UNI [Concomitant]
     Indication: PRODUCT USED FOR UNKNOWN INDICATION
     Dosage: UNK
     Dates: start: 20111209, end: 20131109
  3. SANCOBA [Concomitant]
     Indication: PRODUCT USED FOR UNKNOWN INDICATION
     Dosage: UNK
     Dates: start: 20111209, end: 20131109
  4. LENDORMIN [Concomitant]
     Indication: PRODUCT USED FOR UNKNOWN INDICATION
  5. AMLODIPINE [Concomitant]
     Indication: PRODUCT USED FOR UNKNOWN INDICATION
  6. DEPAS [Concomitant]
     Indication: PRODUCT USED FOR UNKNOWN INDICATION
  7. LIVALO [Concomitant]
     Indication: PRODUCT USED FOR UNKNOWN INDICATION
     Dosage: UNK

REACTIONS (4)
  - Optic neuritis [Unknown]
  - Visual field defect [Unknown]
  - Visual acuity reduced [Unknown]
  - Visual impairment [Unknown]
